FAERS Safety Report 15611816 (Version 1)
Quarter: 2018Q4

REPORT INFORMATION
  Report Type: Report from Study
  Country: JP (occurrence: JP)
  Receive Date: 20181113
  Receipt Date: 20181113
  Transmission Date: 20190205
  Serious: Yes (Other)
  Sender: FDA-Public Use
  Company Number: JP-TEVA-2018-JP-973998

PATIENT
  Age: 60 Year
  Sex: Female

DRUGS (12)
  1. FLUNITRAZEPAM [Suspect]
     Active Substance: FLUNITRAZEPAM
     Dosage: ROUTE: INTRA-GASTRIC (VIA NASAL TUBE)
     Route: 050
  2. HEPARIN [Suspect]
     Active Substance: HEPARIN SODIUM
     Indication: PULMONARY EMBOLISM
     Dosage: CONTINUOUS INTRAVENOUS INFUSION
     Route: 041
  3. MONTEPLASE [Suspect]
     Active Substance: MONTEPLASE
     Indication: DEEP VEIN THROMBOSIS
     Dosage: 800000 UNITS
     Route: 065
  4. MONTEPLASE [Suspect]
     Active Substance: MONTEPLASE
     Indication: PULMONARY EMBOLISM
  5. HALOPERIDOL. [Concomitant]
     Active Substance: HALOPERIDOL
     Indication: BIPOLAR I DISORDER
     Route: 042
  6. LORAZEPAM. [Suspect]
     Active Substance: LORAZEPAM
     Indication: BIPOLAR I DISORDER
     Route: 065
  7. RIVAROXABAN [Suspect]
     Active Substance: RIVAROXABAN
     Indication: DEEP VEIN THROMBOSIS
     Route: 048
  8. FLUNITRAZEPAM [Suspect]
     Active Substance: FLUNITRAZEPAM
     Indication: BIPOLAR I DISORDER
     Route: 042
  9. FLUNITRAZEPAM [Suspect]
     Active Substance: FLUNITRAZEPAM
     Indication: CATATONIA
     Route: 065
  10. RIVAROXABAN [Suspect]
     Active Substance: RIVAROXABAN
     Indication: PULMONARY EMBOLISM
  11. HEPARIN [Suspect]
     Active Substance: HEPARIN SODIUM
     Indication: DEEP VEIN THROMBOSIS
     Dosage: 5000 UNITS
     Route: 065
  12. LORAZEPAM. [Suspect]
     Active Substance: LORAZEPAM
     Indication: CATATONIA
     Dosage: ROUTE: INTRA-GASTRIC (VIA NASAL TUBE)
     Route: 050

REACTIONS (1)
  - Drug ineffective [Unknown]
